FAERS Safety Report 9153809 (Version 1)
Quarter: 2013Q1

REPORT INFORMATION
  Report Type: Spontaneous
  Country: US (occurrence: None)
  Receive Date: 20130308
  Receipt Date: 20130308
  Transmission Date: 20140127
  Serious: Yes (Hospitalization, Other)
  Sender: FDA-Public Use
  Company Number: None

PATIENT
  Sex: Male
  Weight: 89 kg

DRUGS (11)
  1. NEXAVAAR [Suspect]
     Indication: HEPATIC CANCER
     Dosage: 400MG BID PO
     Route: 048
     Dates: start: 20121226, end: 20130213
  2. CITALOPRAM [Concomitant]
  3. TRUVADA [Concomitant]
  4. NABI-HB [Concomitant]
  5. LANTUS [Concomitant]
  6. HUMALOG [Concomitant]
  7. NIFEDIPINE  ER [Concomitant]
  8. SIMVASTATIN [Concomitant]
  9. TACROLIMUS [Concomitant]
  10. DIOVAN [Concomitant]
  11. CALTRATE [Concomitant]

REACTIONS (1)
  - Liver function test abnormal [None]
